FAERS Safety Report 23998140 (Version 1)
Quarter: 2024Q2

REPORT INFORMATION
  Report Type: Spontaneous
  Country: JP (occurrence: None)
  Receive Date: 20240621
  Receipt Date: 20240621
  Transmission Date: 20240715
  Serious: Yes (Other)
  Sender: FDA-Public Use
  Company Number: 2024A138946

PATIENT
  Age: 50 Year
  Sex: Male

DRUGS (7)
  1. DAPAGLIFLOZIN [Suspect]
     Active Substance: DAPAGLIFLOZIN
     Indication: Chronic kidney disease
     Route: 048
  2. CARNITINE CHLORIDE [Suspect]
     Active Substance: CARNITINE CHLORIDE
     Dosage: DOSE UNKNOWN
     Route: 065
  3. METFORMIN HYDROCHLORIDE [Suspect]
     Active Substance: METFORMIN HYDROCHLORIDE
     Dosage: DOSE UNKNOWN
     Route: 065
  4. TAURINE [Suspect]
     Active Substance: TAURINE
     Dosage: DOSE UNKNOWN
     Route: 065
  5. MENADIONE SODIUM BISULFITE [Suspect]
     Active Substance: MENADIONE SODIUM BISULFITE
     Dosage: DOSE UNKNOWN
     Route: 065
  6. VINPOCETINE [Suspect]
     Active Substance: VINPOCETINE
     Dosage: DOSE UNKNOWN
     Route: 065
  7. PROTEINS, AMINO ACID AND PREPARATIONS [Concomitant]
     Dosage: DOSE UNKNOWN
     Route: 065

REACTIONS (1)
  - Multi-organ disorder [Unknown]
